FAERS Safety Report 17909630 (Version 1)
Quarter: 2020Q2

REPORT INFORMATION
  Report Type: Spontaneous
  Country: US (occurrence: US)
  Receive Date: 20200617
  Receipt Date: 20200617
  Transmission Date: 20200714
  Serious: Yes (Other)
  Sender: FDA-Public Use
  Company Number: US-PURDUE-USA-2020-0153256

PATIENT
  Sex: Female

DRUGS (3)
  1. ROXICODONE [Suspect]
     Active Substance: OXYCODONE HYDROCHLORIDE
     Indication: PAIN
     Dosage: 30 MG, UNK
     Route: 065
  2. OXYCODONE/ ACETAMINOPHEN TABLETS [Suspect]
     Active Substance: ACETAMINOPHEN\OXYCODONE HYDROCHLORIDE
     Indication: PAIN
     Dosage: UNK
     Route: 048
     Dates: start: 1999
  3. OXYCONTIN [Suspect]
     Active Substance: OXYCODONE HYDROCHLORIDE
     Indication: PAIN
     Dosage: 80 MG, UNK
     Route: 048

REACTIONS (8)
  - Drug dependence [Unknown]
  - Gastrointestinal disorder [Unknown]
  - Breast cancer [Unknown]
  - Exposure during pregnancy [Unknown]
  - Depression [Unknown]
  - Hernia [Unknown]
  - Prescription drug used without a prescription [Unknown]
  - Intestinal prolapse [Unknown]
